FAERS Safety Report 6158913-9 (Version None)
Quarter: 2009Q2

REPORT INFORMATION
  Report Type: 
  Country: None (occurrence: None)
  Receive Date: 20090417
  Receipt Date: 20090408
  Transmission Date: 20091009
  Serious: Yes (Hospitalization)
  Sender: FDA-Public Use
  Company Number: US-AMGEN-US342183

PATIENT
  Age: 59 Year
  Sex: Male
  Weight: 109.6 kg

DRUGS (20)
  1. PANITUMUMAB [Suspect]
     Indication: SQUAMOUS CELL CARCINOMA
     Route: 042
     Dates: start: 20081219
  2. DOCETAXEL [Suspect]
     Route: 042
     Dates: start: 20081219
  3. CISPLATIN [Suspect]
     Route: 042
     Dates: start: 20081219
  4. FLUOROURACIL [Suspect]
     Route: 042
     Dates: start: 20081219
  5. ATIVAN [Concomitant]
     Route: 065
  6. DECADRON [Concomitant]
     Route: 065
  7. FENTANYL [Concomitant]
     Route: 062
  8. LISINOPRIL [Concomitant]
     Route: 065
  9. MAALOX [Concomitant]
     Route: 065
  10. BENADRYL [Concomitant]
     Route: 065
  11. LIDOCAINE [Concomitant]
     Route: 065
  12. MAGNESIUM OXIDE [Concomitant]
     Route: 065
  13. METFORMIN HCL [Concomitant]
     Route: 065
  14. REGLAN [Concomitant]
     Route: 065
  15. ROXICET [Concomitant]
     Route: 065
  16. SIMVASTATIN [Concomitant]
     Route: 065
  17. TOPROL-XL [Concomitant]
     Route: 065
  18. ZEGERID [Concomitant]
     Route: 065
  19. ZOFRAN [Concomitant]
     Route: 065
  20. RADIATION THERAPY [Concomitant]
     Route: 065

REACTIONS (2)
  - DEHYDRATION [None]
  - OROPHARYNGEAL PAIN [None]
